FAERS Safety Report 24066660 (Version 1)
Quarter: 2024Q3

REPORT INFORMATION
  Report Type: Spontaneous
  Country: NO (occurrence: NO)
  Receive Date: 20240709
  Receipt Date: 20240709
  Transmission Date: 20241017
  Serious: Yes (Death)
  Sender: ROCHE
  Company Number: NO-ROCHE-10000013109

PATIENT
  Age: 40 Year
  Sex: Male

DRUGS (2)
  1. AVASTIN [Suspect]
     Active Substance: BEVACIZUMAB
     Indication: Metastases to lung
     Route: 065
  2. SUTENT [Suspect]
     Active Substance: SUNITINIB MALATE
     Indication: Metastases to lung
     Route: 065

REACTIONS (6)
  - Disease progression [Fatal]
  - Sleep disorder [Fatal]
  - Headache [Fatal]
  - Pneumonia [Fatal]
  - Metastases to lung [Fatal]
  - Haemoptysis [Fatal]
